FAERS Safety Report 6921711-X (Version None)
Quarter: 2010Q3

REPORT INFORMATION
  Report Type: 
  Country: None (occurrence: None)
  Receive Date: 20100805
  Receipt Date: 20090728
  Transmission Date: 20110219
  Serious: Yes (Hospitalization)
  Sender: FDA-Public Use
  Company Number: 2009247768

PATIENT
  Age: 77 Year
  Sex: Female

DRUGS (9)
  1. CAMPTOSAR [Suspect]
     Indication: COLORECTAL CANCER METASTATIC
     Dosage: 232 MG, EVERYSEVEN DAY;, INTRAVENOUS
     Route: 042
     Dates: start: 20090713, end: 20090720
  2. MAGNESIUM SULFATE [Concomitant]
  3. OMEPRAXOLE (OMEPRAZOLE) [Concomitant]
  4. ALLOPURINOL [Concomitant]
  5. LISINOPRIL [Concomitant]
  6. NORVASC [Concomitant]
  7. LOVASTATIN [Concomitant]
  8. COLACE (DOCUSATE SODIUM) [Concomitant]
  9. MINOCYCLINE HCL [Concomitant]

REACTIONS (2)
  - DIARRHOEA [None]
  - PULMONARY EMBOLISM [None]
